FAERS Safety Report 22185575 (Version 2)
Quarter: 2023Q2

REPORT INFORMATION
  Report Type: Report from Study
  Country: US (occurrence: US)
  Receive Date: 20230407
  Receipt Date: 20230412
  Transmission Date: 20230721
  Serious: Yes (Hospitalization, Other)
  Sender: FDA-Public Use
  Company Number: US-BoehringerIngelheim-2022-BI-151324

PATIENT
  Sex: Male

DRUGS (5)
  1. OFEV [Suspect]
     Active Substance: NINTEDANIB
     Indication: Idiopathic pulmonary fibrosis
     Route: 048
     Dates: start: 20220110, end: 20220512
  2. OFEV [Suspect]
     Active Substance: NINTEDANIB
     Route: 048
     Dates: start: 20220726
  3. SILDENAFIL CITRATE [Concomitant]
     Active Substance: SILDENAFIL CITRATE
     Indication: Product used for unknown indication
  4. ELIQUIS [Concomitant]
     Active Substance: APIXABAN
     Indication: Product used for unknown indication
  5. TYASO DPI [Concomitant]
     Indication: Product used for unknown indication

REACTIONS (10)
  - Lower gastrointestinal haemorrhage [Unknown]
  - Pulmonary oedema [Unknown]
  - Internal haemorrhage [Unknown]
  - Pulmonary fibrosis [Unknown]
  - Cystitis [Unknown]
  - Fall [Unknown]
  - Cough [Not Recovered/Not Resolved]
  - Gastroenteritis viral [Unknown]
  - Hepatic enzyme increased [Unknown]
  - Feeling abnormal [Unknown]
